FAERS Safety Report 23099565 (Version 2)
Quarter: 2023Q4

REPORT INFORMATION
  Report Type: Spontaneous
  Country: US (occurrence: US)
  Receive Date: 20231024
  Receipt Date: 20231116
  Transmission Date: 20240110
  Serious: No
  Sender: FDA-Public Use
  Company Number: US-SA-SAC20231021000521

PATIENT
  Sex: Female
  Weight: 67.5 kg

DRUGS (13)
  1. DUPIXENT [Suspect]
     Active Substance: DUPILUMAB
     Indication: Dermatitis atopic
     Dosage: 200 MG, QOW
     Route: 058
  2. DUPIXENT [Suspect]
     Active Substance: DUPILUMAB
     Dosage: 300 MG, QOW
     Route: 058
  3. CETIRIZINE HCL [Concomitant]
     Active Substance: CETIRIZINE HYDROCHLORIDE
  4. FLUOCINOLONE ACETONIDE [Concomitant]
     Active Substance: FLUOCINOLONE ACETONIDE
  5. LORATADINE [Concomitant]
     Active Substance: LORATADINE
  6. MOMETASONE FUROATE [Concomitant]
     Active Substance: MOMETASONE FUROATE
  7. TACROLIMUS [Concomitant]
     Active Substance: TACROLIMUS
  8. NITROFURANTOIN [Concomitant]
     Active Substance: NITROFURANTOIN
  9. TESTOSTERONE CYPIONATE [Concomitant]
     Active Substance: TESTOSTERONE CYPIONATE
  10. SCOPOLAMINE [Concomitant]
     Active Substance: SCOPOLAMINE
  11. PHENAZOPYRIDINE HCL [Concomitant]
     Active Substance: PHENAZOPYRIDINE HYDROCHLORIDE
  12. MOUNJARO [Concomitant]
     Active Substance: TIRZEPATIDE
  13. ALLERGY RELIEF [DIPHENHYDRAMINE HYDROCHLORIDE] [Concomitant]

REACTIONS (1)
  - Injection site pain [Unknown]
